FAERS Safety Report 5868135-4 (Version None)
Quarter: 2008Q3

REPORT INFORMATION
  Report Type: 
  Country: None (occurrence: None)
  Receive Date: 20080902
  Receipt Date: 20080510
  Transmission Date: 20090109
  Serious: No
  Sender: FDA-Public Use
  Company Number: US-ABBOTT-08P-163-0452497-00

PATIENT
  Sex: Female
  Weight: 77.18 kg

DRUGS (5)
  1. DEPAKOTE ER [Suspect]
     Indication: DRUG USE FOR UNKNOWN INDICATION
  2. ESOMEPRAZOLE MAGNESIUM [Concomitant]
     Indication: DRUG USE FOR UNKNOWN INDICATION
  3. METFORMIN HCL [Concomitant]
     Indication: DRUG USE FOR UNKNOWN INDICATION
  4. PIOGLITAZONE [Concomitant]
     Indication: DRUG USE FOR UNKNOWN INDICATION
  5. INHALERS [Concomitant]
     Indication: ASTHMA

REACTIONS (1)
  - DRUG LEVEL DECREASED [None]
